FAERS Safety Report 4421212-7 (Version None)
Quarter: 2004Q3

REPORT INFORMATION
  Report Type: 
  Country: None (occurrence: None)
  Receive Date: 20040809
  Receipt Date: 20040730
  Transmission Date: 20050211
  Serious: Yes (Other)
  Sender: FDA-Public Use
  Company Number: PHHO2004CA10973

PATIENT
  Age: 72 Year
  Sex: Female

DRUGS (1)
  1. CLOZARIL [Suspect]
     Dosage: DOSE REDUCED REPEATEDLY
     Route: 048

REACTIONS (1)
  - DRUG LEVEL INCREASED [None]
